FAERS Safety Report 4432418-5 (Version None)
Quarter: 2004Q3

REPORT INFORMATION
  Report Type: 
  Country: None (occurrence: None)
  Receive Date: 20040825
  Receipt Date: 20040617
  Transmission Date: 20050211
  Serious: Yes (Hospitalization)
  Sender: FDA-Public Use
  Company Number: US-BRISTOL-MYERS SQUIBB COMPANY-12618781

PATIENT
  Age: 42 Year
  Sex: Female

DRUGS (10)
  1. TEQUIN [Suspect]
     Indication: COUGH
     Dosage: THERAPY DATES 28-APR-2004 TO 03-MAY-2004 THE 15-MAY-2004 TO 18-MAY-2004.
     Route: 048
     Dates: start: 20040428, end: 20040518
  2. TEQUIN [Suspect]
     Indication: PYREXIA
     Dosage: THERAPY DATES 28-APR-2004 TO 03-MAY-2004 THE 15-MAY-2004 TO 18-MAY-2004.
     Route: 048
     Dates: start: 20040428, end: 20040518
  3. TERAZOSIN HCL [Concomitant]
  4. NORVASC [Concomitant]
  5. DIOVAN HCT [Concomitant]
  6. SINGULAIR [Concomitant]
  7. ALBUTEROL [Concomitant]
  8. ADVAIR DISKUS 100/50 [Concomitant]
  9. ALLEGRA [Concomitant]
  10. HYDROCHLOROTHIAZIDE [Concomitant]

REACTIONS (5)
  - ASTHENIA [None]
  - HAEMOLYTIC ANAEMIA [None]
  - HEPATITIS [None]
  - JAUNDICE [None]
  - OCULAR ICTERUS [None]
